FAERS Safety Report 13914164 (Version 1)
Quarter: 2017Q3

REPORT INFORMATION
  Report Type: Spontaneous
  Country: US (occurrence: US)
  Receive Date: 20170828
  Receipt Date: 20170828
  Transmission Date: 20171127
  Serious: No
  Sender: FDA-Public Use
  Company Number: US-ROCHE-1125522

PATIENT
  Sex: Female

DRUGS (5)
  1. NUTROPIN [Suspect]
     Active Substance: SOMATROPIN
     Indication: HYPOPITUITARISM
     Route: 050
  2. CORTEF [Concomitant]
     Active Substance: HYDROCORTISONE
  3. DDAVP [Concomitant]
     Active Substance: DESMOPRESSIN ACETATE
  4. LODINE [Concomitant]
     Active Substance: ETODOLAC
  5. SYNTHROID [Concomitant]
     Active Substance: LEVOTHYROXINE SODIUM

REACTIONS (2)
  - Carpal tunnel syndrome [Unknown]
  - Arthralgia [Unknown]
